FAERS Safety Report 12176945 (Version 1)
Quarter: 2016Q1

REPORT INFORMATION
  Report Type: Spontaneous
  Country: US (occurrence: US)
  Receive Date: 20160314
  Receipt Date: 20160314
  Transmission Date: 20160526
  Serious: Yes (Hospitalization)
  Sender: FDA-Public Use
  Company Number: US-ACTAVIS-2016-05571

PATIENT
  Age: 29 Year
  Sex: Male

DRUGS (3)
  1. BUPROPION HYDROCHLORIDE (ACTAVIS LABORATORIES FL) [Suspect]
     Active Substance: BUPROPION HYDROCHLORIDE
     Indication: DEPRESSION
     Dosage: 150 MG, DAILY
     Route: 065
  2. DOXYCYCLINE (ACTAVIS LABORATORIES FL) [Suspect]
     Active Substance: DOXYCYCLINE
     Indication: ACNE
     Route: 065
  3. ACETAMINOPHEN W/OXYCODONE [Concomitant]
     Active Substance: ACETAMINOPHEN\OXYCODONE HYDROCHLORIDE
     Indication: BACK PAIN
     Dosage: AS-NEEDED, ONCE A WEEK
     Route: 048

REACTIONS (1)
  - Drug-induced liver injury [Recovered/Resolved]
